FAERS Safety Report 5783037-X (Version None)
Quarter: 2008Q2

REPORT INFORMATION
  Report Type: 
  Country: None (occurrence: None)
  Receive Date: 20080619
  Receipt Date: 20080605
  Transmission Date: 20081010
  Serious: Yes (Death, Hospitalization)
  Sender: FDA-Public Use
  Company Number: TRP_05759_2008

PATIENT
  Age: 43 Year
  Sex: Female

DRUGS (2)
  1. RIBAVIRIN [Suspect]
     Indication: HEPATITIS C VIRUS
     Dosage: 800 MG ORAL
     Route: 048
  2. PEGINTERFERON ALFA-2B (PEGINTERFERON ALFA-2B) [Suspect]
     Indication: HEPATITIS C VIRUS
     Dosage: 120 UG 1X/WEEK SUBCUTANEOUS
     Route: 058

REACTIONS (14)
  - ABDOMINAL COMPARTMENT SYNDROME [None]
  - CHILLS [None]
  - FATIGUE [None]
  - GENERAL PHYSICAL HEALTH DETERIORATION [None]
  - HAEMOPTYSIS [None]
  - HEPATITIS CHOLESTATIC [None]
  - INTERSTITIAL LUNG DISEASE [None]
  - MARROW HYPERPLASIA [None]
  - PLEURAL EFFUSION [None]
  - PROTHROMBIN TIME SHORTENED [None]
  - PULMONARY TOXICITY [None]
  - RESPIRATORY FAILURE [None]
  - SEPSIS [None]
  - THROMBOCYTOPENIA [None]
